FAERS Safety Report 10614561 (Version 2)
Quarter: 2014Q4

REPORT INFORMATION
  Report Type: Spontaneous
  Country: JP (occurrence: JP)
  Receive Date: 20141130
  Receipt Date: 20141204
  Transmission Date: 20150529
  Serious: Yes (Death)
  Sender: FDA-Public Use
  Company Number: PHHY2010JP095463

PATIENT
  Sex: Male

DRUGS (3)
  1. SPRYCEL [Suspect]
     Active Substance: DASATINIB
     Dosage: 70 MG, UNK
     Route: 065
  2. GLIVEC [Suspect]
     Active Substance: IMATINIB MESYLATE
     Indication: ACUTE LYMPHOCYTIC LEUKAEMIA
     Dosage: 600 MG, UNK
     Route: 065
     Dates: end: 201010
  3. SPRYCEL [Suspect]
     Active Substance: DASATINIB
     Indication: ACUTE LYMPHOCYTIC LEUKAEMIA
     Dosage: 50 MG, UNK
     Route: 065
     Dates: start: 201010

REACTIONS (6)
  - Malignant neoplasm progression [Fatal]
  - Drug resistance [Unknown]
  - Acute lymphocytic leukaemia [Fatal]
  - Rash [Unknown]
  - Oedema [Unknown]
  - Drug intolerance [Unknown]

NARRATIVE: CASE EVENT DATE: 2010
